FAERS Safety Report 5068841-8 (Version None)
Quarter: 2006Q3

REPORT INFORMATION
  Report Type: 
  Country: None (occurrence: None)
  Receive Date: 20060802
  Receipt Date: 20060428
  Transmission Date: 20061208
  Serious: No
  Sender: FDA-Public Use
  Company Number: US-BRISTOL-MYERS SQUIBB COMPANY-13360219

PATIENT
  Age: 78 Year
  Sex: Female
  Weight: 73 kg

DRUGS (4)
  1. COUMADIN [Suspect]
     Indication: ATRIAL FIBRILLATION
  2. WARFARIN SODIUM [Suspect]
     Indication: ATRIAL FIBRILLATION
  3. THYROXINE [Concomitant]
  4. ATENOLOL [Concomitant]
     Dosage: DURATION OF THERAPY:  2-3 YEARS

REACTIONS (1)
  - INTERNATIONAL NORMALISED RATIO DECREASED [None]
